FAERS Safety Report 8032777-0 (Version None)
Quarter: 2011Q4

REPORT INFORMATION
  Report Type: 
  Country: None (occurrence: None)
  Receive Date: 20111223
  Receipt Date: 20111220
  Transmission Date: 20120403
  Serious: Yes (Hospitalization)
  Sender: FDA-Public Use
  Company Number: 2011SP059044

PATIENT
  Age: 56 Year
  Sex: Male

DRUGS (3)
  1. LEVOTHYROXINE SODIUM [Concomitant]
  2. ONCOTICE [Suspect]
     Indication: BLADDER CANCER
     Dosage: 12/5 MG, QW, INVES
     Route: 042
     Dates: end: 20111109
  3. DICLOFENAC [Concomitant]

REACTIONS (7)
  - BODY TEMPERATURE INCREASED [None]
  - ARTHRALGIA [None]
  - CONJUNCTIVITIS [None]
  - BEDRIDDEN [None]
  - MYALGIA [None]
  - HEADACHE [None]
  - ERYTHEMA NODOSUM [None]
